FAERS Safety Report 6645249 (Version 19)
Quarter: 2015Q1

REPORT INFORMATION
  Report Type: Spontaneous
  Country: US (occurrence: US)
  Receive Date: 20080521
  Receipt Date: 20150116
  Transmission Date: 20150721
  Serious: Yes (Hospitalization, Other)
  Sender: FDA-Public Use
  Company Number: US-ROCHE-544713

PATIENT
  Age: 31 Year
  Sex: Male
  Weight: 77.1 kg

DRUGS (1)
  1. ACCUTANE [Suspect]
     Active Substance: ISOTRETINOIN
     Indication: ROSACEA
     Route: 065
     Dates: start: 20030930, end: 20031217

REACTIONS (15)
  - Colitis ulcerative [Recovering/Resolving]
  - Depression [Unknown]
  - Deep vein thrombosis [Recovered/Resolved]
  - Osteoarthritis [Unknown]
  - Neuropathy peripheral [Unknown]
  - Enteritis [Unknown]
  - Irritable bowel syndrome [Unknown]
  - Anal fissure [Unknown]
  - Thrombophlebitis [Unknown]
  - Crohn^s disease [Unknown]
  - Arthropathy [Unknown]
  - Rheumatoid arthritis [Unknown]
  - Osteopenia [Recovered/Resolved]
  - Inflammatory bowel disease [Unknown]
  - Anxiety [Unknown]

NARRATIVE: CASE EVENT DATE: 200310
